FAERS Safety Report 15315048 (Version 2)
Quarter: 2019Q2

REPORT INFORMATION
  Report Type: Report from Study
  Country: JP (occurrence: JP)
  Receive Date: 20180824
  Receipt Date: 20190627
  Transmission Date: 20190711
  Serious: Yes (Other)
  Sender: FDA-Public Use
  Company Number: JP-VIIV HEALTHCARE LIMITED-JP2018JPN152861

PATIENT
  Age: 40 Year
  Sex: Male

DRUGS (3)
  1. TALION (JAPAN) [Concomitant]
     Active Substance: BEPOTASTINE BESILATE
     Dosage: UNK
     Dates: start: 20170219, end: 20170405
  2. MUCODYNE [Concomitant]
     Active Substance: CARBOCYSTEINE
     Dosage: UNK
     Dates: start: 20170219, end: 20170405
  3. ABACAVIRSULPHATE+DOLUTEGRAVIR+LAMIVUDINE [Suspect]
     Active Substance: ABACAVIR SULFATE\DOLUTEGRAVIR SODIUM\LAMIVUDINE
     Indication: HIV INFECTION
     Dosage: 1 DF, 1D
     Route: 048
     Dates: start: 20170312

REACTIONS (5)
  - Anal abscess [Recovering/Resolving]
  - Syphilis [Not Recovered/Not Resolved]
  - Scrotal inflammation [Recovering/Resolving]
  - Blood triglycerides increased [Not Recovered/Not Resolved]
  - Rhinitis [Recovering/Resolving]

NARRATIVE: CASE EVENT DATE: 20170405
